FAERS Safety Report 17401110 (Version 1)
Quarter: 2020Q1

REPORT INFORMATION
  Report Type: Spontaneous
  Country: US (occurrence: US)
  Receive Date: 20200211
  Receipt Date: 20200211
  Transmission Date: 20200409
  Serious: Yes (Other)
  Sender: FDA-Public Use
  Company Number: US-SA-2020SA034144

PATIENT
  Age: 25 Year

DRUGS (1)
  1. ALPROLIX [Suspect]
     Active Substance: EFTRENONACOG ALFA
     Dosage: 3650 IU
     Route: 042

REACTIONS (1)
  - Haemarthrosis [Recovered/Resolved]

NARRATIVE: CASE EVENT DATE: 20200123
